FAERS Safety Report 8605600-0 (Version None)
Quarter: 2012Q3

REPORT INFORMATION
  Report Type: 
  Country: None (occurrence: None)
  Receive Date: 20120820
  Receipt Date: 20120813
  Transmission Date: 20120928
  Serious: Yes (Death, Other)
  Sender: FDA-Public Use
  Company Number: JP-CELGENEUS-087-50794-12021708

PATIENT
  Age: 77 Year
  Sex: Female
  Weight: 42 kg

DRUGS (25)
  1. VIDAZA [Suspect]
     Dosage: 75 MILLIGRAM/SQ. METER
     Route: 041
     Dates: start: 20110728, end: 20110803
  2. ITRACONAZOLE [Concomitant]
     Route: 065
     Dates: start: 20110812
  3. OLOPATADINE HCL [Concomitant]
     Route: 065
     Dates: end: 20120721
  4. BACTRIM [Concomitant]
     Route: 065
     Dates: start: 20120719, end: 20120721
  5. VIDAZA [Suspect]
     Dosage: 25 MILLIGRAM/SQ. METER
     Route: 041
     Dates: start: 20120612, end: 20120618
  6. GASCON [Concomitant]
     Route: 065
     Dates: end: 20120721
  7. MORPHINE HYDROCHLORIDE HYDRATE [Concomitant]
     Route: 065
     Dates: start: 20120719, end: 20120721
  8. VIDAZA [Suspect]
     Dosage: 25 MILLIGRAM/SQ. METER
     Route: 041
     Dates: start: 20120220, end: 20120226
  9. TICLOPIDINE HCL [Concomitant]
     Route: 065
  10. GASMOTIN [Concomitant]
     Route: 065
     Dates: end: 20120721
  11. MAGLAX [Concomitant]
     Route: 065
     Dates: end: 20120721
  12. VIDAZA [Suspect]
     Dosage: 25 MILLIGRAM/SQ. METER
     Route: 041
     Dates: start: 20111217, end: 20111223
  13. ASPIRIN [Concomitant]
     Route: 065
  14. GASMOTIN [Concomitant]
     Route: 065
  15. VFEND [Concomitant]
     Route: 065
     Dates: start: 20111117, end: 20120104
  16. HANP [Concomitant]
     Route: 065
     Dates: end: 20120721
  17. VFEND [Concomitant]
     Route: 065
     Dates: start: 20111114, end: 20111118
  18. LANSOPRAZOLE [Concomitant]
     Route: 065
     Dates: end: 20120721
  19. POLYMYXIN B SULFATE [Concomitant]
     Route: 065
     Dates: start: 20110916
  20. VIDAZA [Suspect]
     Dosage: 25 MILLIGRAM/SQ. METER
     Route: 041
     Dates: start: 20111103, end: 20111109
  21. VFEND [Concomitant]
     Route: 065
     Dates: end: 20120721
  22. SEROTONE [Concomitant]
     Route: 065
     Dates: start: 20111103, end: 20111109
  23. FIRSTCIN [Concomitant]
     Route: 065
     Dates: start: 20111114, end: 20111124
  24. LEVOFLOXACIN [Concomitant]
     Route: 065
     Dates: start: 20110812, end: 20110915
  25. SEROTONE [Concomitant]
     Route: 065
     Dates: start: 20110728, end: 20110803

REACTIONS (6)
  - RED BLOOD CELL COUNT DECREASED [None]
  - WHITE BLOOD CELL COUNT DECREASED [None]
  - PNEUMONIA [None]
  - PLATELET COUNT DECREASED [None]
  - NEUTROPHIL COUNT DECREASED [None]
  - HAEMOGLOBIN DECREASED [None]
